FAERS Safety Report 9727640 (Version 2)
Quarter: 2013Q4

REPORT INFORMATION
  Report Type: Spontaneous
  Country: JP (occurrence: JP)
  Receive Date: 20131203
  Receipt Date: 20131212
  Transmission Date: 20140711
  Serious: Yes (Other)
  Sender: FDA-Public Use
  Company Number: PHHY2013JP139474

PATIENT
  Age: 60 Year
  Sex: Male

DRUGS (4)
  1. RASILEZ [Suspect]
     Indication: HYPERTENSION
     Dosage: UNK UKN, UNK
     Route: 048
  2. MICARDIS [Concomitant]
     Dosage: UNK UKN, UNK
     Route: 048
  3. ANGIOTENSIN CONVERTING ENZYME BLOCKERS [Concomitant]
     Dosage: UNK UKN, UNK
  4. CALCIUM CHANNEL BLOCKERS [Concomitant]
     Dosage: UNK UKN, UNK

REACTIONS (1)
  - Diabetes mellitus [Unknown]
